FAERS Safety Report 20390955 (Version 2)
Quarter: 2022Q1

REPORT INFORMATION
  Report Type: Report from Study
  Country: US (occurrence: US)
  Receive Date: 20220128
  Receipt Date: 20220201
  Transmission Date: 20220423
  Serious: Yes (Hospitalization)
  Sender: FDA-Public Use
  Company Number: US-NOVARTISPH-NVSC2021US179931

PATIENT
  Age: 68 Year
  Sex: Female
  Weight: 64.7 kg

DRUGS (11)
  1. TNO-155 MONOSUCCINATE HEMIHYDRATE [Suspect]
     Active Substance: TNO-155 MONOSUCCINATE HEMIHYDRATE
     Indication: Colorectal cancer
     Dosage: 150 MG
     Route: 048
     Dates: start: 20210722
  2. MEKINIST [Suspect]
     Active Substance: TRAMETINIB DIMETHYL SULFOXIDE
     Indication: Colorectal cancer
     Dosage: 1 MG
     Route: 048
     Dates: start: 20210722
  3. DABRAFENIB [Suspect]
     Active Substance: DABRAFENIB
     Indication: Colorectal cancer
     Dosage: 20 MG, QD
     Route: 048
     Dates: start: 20210722, end: 20210806
  4. METAMUCIL [Concomitant]
     Active Substance: PLANTAGO SEED
     Indication: General physical condition
     Dosage: UNK
     Route: 065
     Dates: start: 20201224
  5. LOMOTIL [Concomitant]
     Active Substance: ATROPINE SULFATE\DIPHENOXYLATE HYDROCHLORIDE
     Indication: General physical condition
     Dosage: 2.5 MG TO 0.025 MG
     Route: 065
     Dates: start: 20210722
  6. DYMISTA [Concomitant]
     Active Substance: AZELASTINE HYDROCHLORIDE\FLUTICASONE PROPIONATE
     Indication: General physical condition
     Dosage: 137 UG-50 UG
     Route: 065
     Dates: start: 20210224
  7. EMLA [Concomitant]
     Active Substance: LIDOCAINE\PRILOCAINE
     Indication: Postoperative care
     Dosage: UNK
     Route: 065
     Dates: start: 20190327
  8. IMODIUM [Concomitant]
     Active Substance: LOPERAMIDE HYDROCHLORIDE
     Indication: Diarrhoea
     Dosage: UNK
     Route: 065
     Dates: start: 20210722
  9. NYSTOP [Concomitant]
     Active Substance: NYSTATIN
     Indication: Fungal infection
     Dosage: UNK
     Route: 065
     Dates: start: 20210503
  10. COMPAZINE [Concomitant]
     Active Substance: PROCHLORPERAZINE MALEATE
     Indication: Nausea
     Dosage: UNK
     Route: 065
     Dates: start: 20210722
  11. PRINIVIL [Concomitant]
     Active Substance: LISINOPRIL
     Indication: Hypertension
     Dosage: UNK
     Route: 065
     Dates: start: 20191012

REACTIONS (1)
  - Hyponatraemia [Recovered/Resolved]

NARRATIVE: CASE EVENT DATE: 20210805
